FAERS Safety Report 23103186 (Version 1)
Quarter: 2023Q4

REPORT INFORMATION
  Report Type: Spontaneous
  Country: DE (occurrence: DE)
  Receive Date: 20231025
  Receipt Date: 20231025
  Transmission Date: 20240110
  Serious: Yes (Death, Hospitalization, Other)
  Sender: FDA-Public Use
  Company Number: DE-SA-2016SA225991

PATIENT
  Age: 73 Year
  Sex: Male

DRUGS (17)
  1. OXALIPLATIN [Suspect]
     Active Substance: OXALIPLATIN
     Indication: Composite lymphoma
     Dosage: UNK UNK,QCY
     Route: 065
  2. PREDNISOLONE [Suspect]
     Active Substance: PREDNISOLONE
     Indication: Leukopenia
     Dosage: UNK UNK,QOW
     Route: 065
     Dates: start: 20150101
  3. CYCLOPHOSPHAMIDE [Suspect]
     Active Substance: CYCLOPHOSPHAMIDE
     Indication: Leukopenia
     Dosage: UNK UNK,QOW
     Route: 065
     Dates: start: 20150101
  4. GEMCITABINE [Suspect]
     Active Substance: GEMCITABINE
     Indication: Composite lymphoma
     Dosage: UNK UNK,QCY
     Route: 065
  5. BENDAMUSTINE [Suspect]
     Active Substance: BENDAMUSTINE
     Indication: Lymphoma
     Dosage: UNK UNK,QCY
     Route: 065
  6. BENDAMUSTINE [Suspect]
     Active Substance: BENDAMUSTINE
     Indication: Leukopenia
     Dosage: UNK UNK,QCY
     Route: 065
     Dates: start: 201506, end: 201507
  7. FILGRASTIM [Suspect]
     Active Substance: FILGRASTIM
     Indication: Composite lymphoma
     Dosage: 48 MIU,QD
     Route: 058
  8. NEUPOGEN [Suspect]
     Active Substance: FILGRASTIM
     Indication: Leukopenia
     Dosage: 48 MIU,QD
     Route: 058
     Dates: start: 20150101
  9. DOXORUBICIN HYDROCHLORIDE [Suspect]
     Active Substance: DOXORUBICIN HYDROCHLORIDE
     Indication: Follicular lymphoma
     Dosage: 20 MG/M2,Q3W
     Route: 065
     Dates: start: 20140901
  10. DOXORUBICIN HYDROCHLORIDE [Suspect]
     Active Substance: DOXORUBICIN HYDROCHLORIDE
     Indication: Peripheral T-cell lymphoma unspecified
  11. ETOPOSIDE [Suspect]
     Active Substance: ETOPOSIDE
     Indication: Lymphoma
     Dosage: UNK UNK,UNK
     Route: 065
     Dates: start: 20150601, end: 20150701
  12. VINCRISTINE [Suspect]
     Active Substance: VINCRISTINE
     Indication: Leukopenia
     Dosage: UNK UNK,QOW
     Route: 065
     Dates: start: 20150101
  13. PIXANTRONE [Suspect]
     Active Substance: PIXANTRONE
     Indication: Leukopenia
     Dosage: UNK UNK,UNK
     Route: 065
     Dates: start: 20150601, end: 20150701
  14. AMINOSALICYLIC ACID [Concomitant]
     Active Substance: AMINOSALICYLIC ACID
     Dosage: UNK UNK,UNK
     Route: 065
  15. NAFRONYL OXALATE [Concomitant]
     Active Substance: NAFRONYL OXALATE
     Dosage: UNK UNK,UNK
     Route: 065
  16. METOPROLOL SUCCINATE [Concomitant]
     Active Substance: METOPROLOL SUCCINATE
     Dosage: UNK UNK,UNK
     Route: 065
  17. ONDANSETRON [Concomitant]
     Active Substance: ONDANSETRON
     Indication: Premedication
     Dosage: UNK UNK,UNK
     Route: 065

REACTIONS (16)
  - B-cell lymphoma [Fatal]
  - Peripheral T-cell lymphoma unspecified [Fatal]
  - Pneumonia [Fatal]
  - Leukopenia [Fatal]
  - Rash papular [Fatal]
  - Drug eruption [Fatal]
  - Rash [Recovered/Resolved]
  - Palmar-plantar erythrodysaesthesia syndrome [Fatal]
  - Pyrexia [Fatal]
  - Rash maculo-papular [Fatal]
  - Pyrexia [Fatal]
  - Skin toxicity [Fatal]
  - Myelosuppression [Fatal]
  - Disease progression [Fatal]
  - Off label use [Fatal]
  - Product use in unapproved indication [Fatal]

NARRATIVE: CASE EVENT DATE: 20141101
